FAERS Safety Report 5605184-5 (Version None)
Quarter: 2008Q1

REPORT INFORMATION
  Report Type: 
  Country: None (occurrence: None)
  Receive Date: 20080128
  Receipt Date: 20080116
  Transmission Date: 20080703
  Serious: Yes (Other)
  Sender: FDA-Public Use
  Company Number: US-PFIZER INC-2008005913

PATIENT
  Sex: Female
  Weight: 59.09 kg

DRUGS (3)
  1. LYRICA [Suspect]
     Indication: BACK PAIN
  2. INTERFERON BETA [Concomitant]
  3. LEVOXYL [Concomitant]

REACTIONS (2)
  - BACK PAIN [None]
  - MUSCULAR WEAKNESS [None]
